FAERS Safety Report 13725246 (Version 1)
Quarter: 2017Q3

REPORT INFORMATION
  Report Type: Report from Study
  Country: US (occurrence: US)
  Receive Date: 20170706
  Receipt Date: 20170706
  Transmission Date: 20171127
  Serious: Yes (Hospitalization)
  Sender: FDA-Public Use
  Company Number: US-BAYER-2017-124071

PATIENT
  Age: 59 Year
  Sex: Male
  Weight: 173 kg

DRUGS (1)
  1. NEXAVAR [Suspect]
     Active Substance: SORAFENIB
     Indication: HEPATIC CANCER
     Dosage: 400 MG, BID
     Route: 048
     Dates: start: 20170531

REACTIONS (3)
  - Feeding disorder [Unknown]
  - Swelling face [Unknown]
  - Head discomfort [Unknown]
